FAERS Safety Report 7928117-5 (Version None)
Quarter: 2011Q4

REPORT INFORMATION
  Report Type: 
  Country: None (occurrence: None)
  Receive Date: 20111118
  Receipt Date: 20111109
  Transmission Date: 20120403
  Serious: Yes (Other)
  Sender: FDA-Public Use
  Company Number: US-BAYER-2011-023761

PATIENT
  Age: 39 Year
  Sex: Female
  Weight: 80.272 kg

DRUGS (7)
  1. LORTAB [Concomitant]
  2. YASMIN [Suspect]
     Indication: PROPHYLAXIS
     Dosage: UNK
     Route: 048
     Dates: start: 20051020, end: 20081001
  3. ANTIBIOTICS [Concomitant]
     Dosage: UNK
     Dates: start: 20070322
  4. IBUPROFEN [Concomitant]
  5. CIPRO [Concomitant]
  6. OMNICEF [Concomitant]
  7. LOPRESSOR [Concomitant]

REACTIONS (2)
  - CHOLECYSTITIS CHRONIC [None]
  - GALLBLADDER INJURY [None]
